FAERS Safety Report 6274494-3 (Version None)
Quarter: 2009Q3

REPORT INFORMATION
  Report Type: 
  Country: None (occurrence: None)
  Receive Date: 20090716
  Receipt Date: 20090709
  Transmission Date: 20100115
  Serious: Yes (Hospitalization)
  Sender: FDA-Public Use
  Company Number: 2009007378

PATIENT
  Sex: Male
  Weight: 85.7298 kg

DRUGS (6)
  1. PROVIGIL [Suspect]
     Dosage: ORAL
     Route: 048
     Dates: start: 20070101
  2. BOTOX [Suspect]
     Indication: TEMPOROMANDIBULAR JOINT SYNDROME
     Dosage: 100 UNITS TO BILATERAL MASSETER AND TEMPORALIS
     Dates: start: 20090325
  3. MS CONTIN [Concomitant]
  4. VALIUM [Concomitant]
  5. EFFEXOR [Concomitant]
  6. NAPROXEN [Concomitant]

REACTIONS (3)
  - ANAPHYLACTIC REACTION [None]
  - ANGIOEDEMA [None]
  - DYSPNOEA [None]
